FAERS Safety Report 13029018 (Version 1)
Quarter: 2016Q4

REPORT INFORMATION
  Report Type: Spontaneous
  Country: US (occurrence: US)
  Receive Date: 20161214
  Receipt Date: 20161214
  Transmission Date: 20170207
  Serious: No
  Sender: FDA-Public Use
  Company Number: US-BAUSCH-BL-2016-010075

PATIENT
  Sex: Male
  Weight: 79.45 kg

DRUGS (2)
  1. FLUOROURACIL 0.5 % [Suspect]
     Active Substance: FLUOROURACIL
     Indication: PRECANCEROUS SKIN LESION
     Dosage: NIGHTLY
     Route: 061
  2. CORTISONE [Concomitant]
     Active Substance: CORTISONE\HYDROCORTISONE
     Indication: PRODUCT USED FOR UNKNOWN INDICATION

REACTIONS (5)
  - Skin discolouration [Unknown]
  - Drug ineffective [Unknown]
  - Skin burning sensation [Unknown]
  - Product quality issue [None]
  - Product quality issue [Unknown]
